FAERS Safety Report 7262423-5 (Version None)
Quarter: 2011Q1

REPORT INFORMATION
  Report Type: 
  Country: None (occurrence: None)
  Receive Date: 20110130
  Receipt Date: 20101118
  Transmission Date: 20110831
  Serious: No
  Sender: FDA-Public Use
  Company Number: US-ABBOTT-10P-163-0686382-00

PATIENT
  Sex: Female
  Weight: 80.358 kg

DRUGS (13)
  1. CITALOPRAM [Concomitant]
     Indication: DEPRESSION
     Route: 048
  2. PREDNISONE [Concomitant]
     Indication: ARTHRALGIA
     Route: 048
  3. ALENDRONATE SODIUM [Concomitant]
     Indication: OSTEOPOROSIS
     Route: 048
  4. ASPIRIN [Concomitant]
     Indication: CEREBROVASCULAR ACCIDENT PROPHYLAXIS
     Route: 048
  5. AZATHIOPRINE [Concomitant]
     Indication: RHEUMATOID ARTHRITIS
     Route: 048
  6. FOLIC ACID [Concomitant]
     Indication: VITAMIN SUPPLEMENTATION
     Route: 048
  7. CALCIUM W/D [Concomitant]
     Indication: MINERAL SUPPLEMENTATION
     Route: 048
  8. ASCORBIC ACID [Concomitant]
     Indication: VITAMIN SUPPLEMENTATION
     Route: 048
  9. TRAZODONE [Concomitant]
     Indication: INSOMNIA
     Route: 048
  10. SYNTHROID [Concomitant]
     Indication: HYPOTHYROIDISM
     Route: 048
  11. HUMIRA [Suspect]
     Indication: RHEUMATOID ARTHRITIS
     Route: 058
     Dates: start: 20100901
  12. LANSOPRAZOLE [Concomitant]
     Indication: ULCER
     Route: 048
  13. OXYBUTYNIN [Concomitant]
     Indication: URINARY INCONTINENCE
     Route: 048

REACTIONS (1)
  - MUSCLE SPASMS [None]
